FAERS Safety Report 7221462-0 (Version None)
Quarter: 2010Q4

REPORT INFORMATION
  Report Type: 
  Country: None (occurrence: None)
  Receive Date: 20101230
  Receipt Date: 20101213
  Transmission Date: 20110411
  Serious: Yes (Hospitalization, Other)
  Sender: FDA-Public Use
  Company Number: ACO_20981_2010

PATIENT
  Age: 39 Year
  Sex: Female

DRUGS (15)
  1. AMPYRA [Suspect]
     Indication: GAIT DISTURBANCE
     Dosage: 10 MG, BID, ORAL
     Route: 048
     Dates: start: 20100825, end: 20101208
  2. AMPYRA [Suspect]
  3. AMPYRA [Suspect]
  4. COPAXONE [Concomitant]
  5. LYRICA [Concomitant]
  6. DETROL LA [Concomitant]
  7. BACLOFEN [Concomitant]
  8. PROVIGIL [Concomitant]
  9. OMEPRAZOLE [Concomitant]
  10. CHROMAGEN FA (ASCORBIC ACID, CYANOBALAMIN, FERROUS FUMARATE, FOLIC ACI [Concomitant]
  11. DOMPERIDONE (DOMPERIDONE) [Concomitant]
  12. CENTRUM /01536001/ (ASCORBIC ACID, BETACAROTENE, COLECALCIFEROL, FOLIC [Concomitant]
  13. VITAMIN C /00008001/ (ASCORBIC ACID) [Concomitant]
  14. ERGOCALCIFEROL [Concomitant]
  15. FLORINEF [Concomitant]

REACTIONS (10)
  - ASTHENIA [None]
  - CONVULSION [None]
  - DIZZINESS [None]
  - FALL [None]
  - FATIGUE [None]
  - FOOT FRACTURE [None]
  - HYPOAESTHESIA [None]
  - HYPOTENSION [None]
  - ORTHOSTATIC HYPOTENSION [None]
  - SYNCOPE [None]
